FAERS Safety Report 14929549 (Version 1)
Quarter: 2018Q2

REPORT INFORMATION
  Report Type: Spontaneous
  Country: US (occurrence: US)
  Receive Date: 20180523
  Receipt Date: 20180523
  Transmission Date: 20180711
  Serious: Yes (Other)
  Sender: FDA-Public Use
  Company Number: US-MYLANLABS-2018M1033046

PATIENT
  Age: 15 Year
  Sex: Male
  Weight: 59 kg

DRUGS (6)
  1. AMNESTEEM [Suspect]
     Active Substance: ISOTRETINOIN
     Indication: ACNE
     Dosage: UNK
  2. AMNESTEEM [Suspect]
     Active Substance: ISOTRETINOIN
     Indication: ACNE
     Dosage: 20 MG, BID
     Route: 048
     Dates: start: 201704
  3. AMNESTEEM [Suspect]
     Active Substance: ISOTRETINOIN
     Indication: ALOPECIA SCARRING
  4. CLARAVIS [Suspect]
     Active Substance: ISOTRETINOIN
     Indication: ALOPECIA SCARRING
     Dosage: 30 MG, BID
  5. AMNESTEEM [Suspect]
     Active Substance: ISOTRETINOIN
     Indication: ALOPECIA SCARRING
  6. CLARAVIS [Suspect]
     Active Substance: ISOTRETINOIN
     Indication: ACNE
     Dosage: 20 MG, BID
     Dates: start: 20170628

REACTIONS (10)
  - Onychomadesis [Not Recovered/Not Resolved]
  - Ligament laxity [Recovered/Resolved]
  - Acne [Not Recovered/Not Resolved]
  - Nail infection [Not Recovered/Not Resolved]
  - Constipation [Not Recovered/Not Resolved]
  - Weight increased [Not Recovered/Not Resolved]
  - Nail bed infection [Not Recovered/Not Resolved]
  - Growth failure [Not Recovered/Not Resolved]
  - Gastrointestinal disorder [Not Recovered/Not Resolved]
  - Diarrhoea [Not Recovered/Not Resolved]

NARRATIVE: CASE EVENT DATE: 20180514
